FAERS Safety Report 9282157 (Version 2)
Quarter: 2013Q3

REPORT INFORMATION
  Report Type: Spontaneous
  Country: US (occurrence: US)
  Receive Date: 20130510
  Receipt Date: 20130710
  Transmission Date: 20140515
  Serious: No
  Sender: FDA-Public Use
  Company Number: US-PFIZER INC-2013142989

PATIENT
  Age: 74 Year
  Sex: Female
  Weight: 62.59 kg

DRUGS (6)
  1. LYRICA [Suspect]
     Indication: FIBROMYALGIA
     Dosage: 300 MG, 1X/DAY
  2. LYRICA [Suspect]
     Dosage: 75 MG DAILY
  3. LYRICA [Suspect]
     Dosage: 100 MG, 2X/DAY
  4. LYRICA [Suspect]
     Dosage: 150 MG, 2X/DAY
     Dates: start: 2010
  5. LIBRAX [Suspect]
     Indication: GASTROINTESTINAL DISORDER
     Dosage: UNK
  6. BABY ASPIRIN [Suspect]
     Dosage: 81 MG DAILY
     Dates: start: 2003

REACTIONS (5)
  - Myalgia [Unknown]
  - Drug ineffective [Unknown]
  - Fatigue [Unknown]
  - Nausea [Unknown]
  - Abdominal discomfort [Unknown]
